FAERS Safety Report 8880014 (Version 2)
Quarter: 2013Q1

REPORT INFORMATION
  Report Type: Report from Study
  Country: JP (occurrence: JP)
  Receive Date: 20121031
  Receipt Date: 20130125
  Transmission Date: 20140127
  Serious: Yes (Other)
  Sender: FDA-Public Use
  Company Number: JP-VERTEX PHARMACEUTICAL INC.-AE-2012-009043

PATIENT
  Age: 52 Year
  Sex: Female

DRUGS (14)
  1. VX-950 (TELAPREVIR) [Suspect]
     Indication: CHRONIC HEPATITIS C
     Dosage: 2250 MG, QD
     Route: 048
     Dates: start: 20120418, end: 20120522
  2. VX-950 (TELAPREVIR) [Suspect]
     Dosage: 1500 MG, QD
     Route: 048
     Dates: start: 20120523, end: 20120711
  3. REBETOL [Suspect]
     Indication: CHRONIC HEPATITIS C
     Dosage: 600 MG, QD
     Route: 048
     Dates: start: 20120418, end: 20120515
  4. REBETOL [Suspect]
     Dosage: 200 MG, QD
     Route: 048
     Dates: start: 20120516, end: 20120817
  5. REBETOL [Suspect]
     Dosage: 400 MG, QD
     Route: 048
     Dates: start: 20120818, end: 20121002
  6. PEGINTRON [Suspect]
     Indication: CHRONIC HEPATITIS C
     Dosage: 1.5 ?G/KG, UNK
     Route: 058
     Dates: start: 20120418, end: 20120704
  7. PEGINTRON [Suspect]
     Dosage: 1.0 ?G/KG, UNK
     Route: 058
     Dates: start: 20120711, end: 20120926
  8. URSO                               /00465701/ [Concomitant]
     Dosage: 600 MG, QD
     Route: 048
  9. GASTER D [Concomitant]
     Dosage: 2 DF, QD
     Route: 048
     Dates: start: 20120418, end: 20121002
  10. GASTER D [Concomitant]
     Dosage: 40 MG, QD
     Route: 048
     Dates: end: 20121002
  11. NABOAL                             /00372302/ [Concomitant]
     Dosage: UNK UNK, PRN
     Route: 048
     Dates: start: 20120418, end: 20120606
  12. ALOSENN                            /00476901/ [Concomitant]
     Dosage: 0.5 G, QD
     Route: 048
     Dates: start: 20120418, end: 20120418
  13. VOLTAREN                           /00372301/ [Concomitant]
     Dosage: 1 DF, PRN
     Route: 048
     Dates: start: 20120606, end: 20121002
  14. LAXOBERON [Concomitant]
     Dosage: UNK, PRN
     Route: 048
     Dates: start: 20120808, end: 20120822

REACTIONS (2)
  - White blood cell count decreased [Not Recovered/Not Resolved]
  - Neutrophil count decreased [Not Recovered/Not Resolved]
